FAERS Safety Report 13088851 (Version 1)
Quarter: 2016Q4

REPORT INFORMATION
  Report Type: Spontaneous
  Country: US (occurrence: US)
  Receive Date: 20161231
  Receipt Date: 20161231
  Transmission Date: 20170207
  Serious: Yes (Disabling)
  Sender: FDA-Public Use
  Company Number: None

PATIENT
  Age: 50 Year
  Sex: Female
  Weight: 67.5 kg

DRUGS (4)
  1. VITAMIN D [Concomitant]
     Active Substance: CHOLECALCIFEROL
  2. PROBIOTICS [Concomitant]
     Active Substance: PROBIOTICS NOS
  3. LEVOFLOXACIN. [Suspect]
     Active Substance: LEVOFLOXACIN
     Indication: PNEUMONIA
     Dosage: QUANTITY:10 TABLET(S); DAILY; ORAL?
     Route: 048
     Dates: start: 20161218, end: 20161225
  4. OXYGARD [Concomitant]

REACTIONS (8)
  - Pain in extremity [None]
  - Eye pain [None]
  - Myalgia [None]
  - Malaise [None]
  - Hyperthyroidism [None]
  - Neuropathy peripheral [None]
  - Photophobia [None]
  - Paraesthesia [None]

NARRATIVE: CASE EVENT DATE: 20161225
